FAERS Safety Report 5693931-6 (Version None)
Quarter: 2008Q2

REPORT INFORMATION
  Report Type: 
  Country: None (occurrence: None)
  Receive Date: 20080403
  Receipt Date: 20080327
  Transmission Date: 20081010
  Serious: Yes (Hospitalization, Other)
  Sender: FDA-Public Use
  Company Number: HQWYE858807JUL03

PATIENT
  Sex: Female

DRUGS (1)
  1. PREMARIN [Suspect]
     Indication: OESTROGEN REPLACEMENT THERAPY
     Dosage: UNKNOWN DOSE/DAILY
     Route: 048

REACTIONS (5)
  - BLADDER MASS [None]
  - KIDNEY ENLARGEMENT [None]
  - PULMONARY EMBOLISM [None]
  - THROMBOSIS [None]
  - VAGINAL NEOPLASM [None]
